FAERS Safety Report 7301734-1 (Version None)
Quarter: 2011Q1

REPORT INFORMATION
  Report Type: 
  Country: None (occurrence: None)
  Receive Date: 20110218
  Receipt Date: 20110214
  Transmission Date: 20110831
  Serious: Yes (Congenital Anomaly)
  Sender: FDA-Public Use
  Company Number: A0752254A

PATIENT
  Sex: Female

DRUGS (6)
  1. UNSPECIFIED MEDICATION [Concomitant]
  2. AZITHROMYCIN [Concomitant]
  3. RANITIDINE [Concomitant]
  4. PAROXETINE HYDROCHLORIDE [Suspect]
     Dosage: 20MG TWICE PER DAY
     Route: 064
  5. PENICILLIN [Concomitant]
  6. PRENATAL VITAMINS [Concomitant]
     Route: 064

REACTIONS (5)
  - CARDIAC DISORDER [None]
  - VENTRICULAR SEPTAL DEFECT [None]
  - DRUG EXPOSURE DURING PREGNANCY [None]
  - ATRIAL SEPTAL DEFECT [None]
  - LUNG DISORDER [None]
